FAERS Safety Report 15856918 (Version 1)
Quarter: 2019Q1

REPORT INFORMATION
  Report Type: Spontaneous
  Country: DE (occurrence: DE)
  Receive Date: 20190123
  Receipt Date: 20190123
  Transmission Date: 20190417
  Serious: Yes (Hospitalization, Other)
  Sender: FDA-Public Use
  Company Number: DE-ASTRAZENECA-2019SE08690

PATIENT
  Age: 86 Year
  Sex: Male

DRUGS (2)
  1. TRENANTONE [Concomitant]
     Active Substance: LEUPROLIDE ACETATE
  2. BYDUREON [Suspect]
     Active Substance: EXENATIDE
     Indication: TYPE 2 DIABETES MELLITUS
     Route: 065

REACTIONS (4)
  - Diarrhoea [Unknown]
  - Therapeutic response unexpected [Recovering/Resolving]
  - Circulatory collapse [Unknown]
  - Prostate cancer [Unknown]
